FAERS Safety Report 19133641 (Version 4)
Quarter: 2021Q2

REPORT INFORMATION
  Report Type: Spontaneous
  Country: US (occurrence: US)
  Receive Date: 20210414
  Receipt Date: 20210602
  Transmission Date: 20210717
  Serious: Yes (Death)
  Sender: FDA-Public Use
  Company Number: US-PFIZER INC-2021235494

PATIENT
  Age: 81 Year
  Sex: Male

DRUGS (1)
  1. RUXIENCE [Suspect]
     Active Substance: RITUXIMAB-PVVR
     Dosage: 800 MG, EVERY 3 WEEKS (Q 21 D)

REACTIONS (2)
  - Off label use [Unknown]
  - Death [Fatal]
